FAERS Safety Report 11453209 (Version 2)
Quarter: 2015Q4

REPORT INFORMATION
  Report Type: Spontaneous
  Country: US (occurrence: US)
  Receive Date: 20150903
  Receipt Date: 20151012
  Transmission Date: 20160304
  Serious: Yes (Hospitalization, Other)
  Sender: FDA-Public Use
  Company Number: US-009507513-1509USA001257

PATIENT
  Sex: Male
  Weight: 84.44 kg

DRUGS (3)
  1. JANUMET [Suspect]
     Active Substance: METFORMIN HYDROCHLORIDE\SITAGLIPTIN PHOSPHATE
     Dosage: UNK
     Route: 048
     Dates: start: 20130423, end: 20140211
  2. JANUVIA [Suspect]
     Active Substance: SITAGLIPTIN PHOSPHATE
     Indication: TYPE 2 DIABETES MELLITUS
     Dosage: 100 MG, DAILY
     Route: 048
     Dates: start: 20090323, end: 201302
  3. JANUMET XR [Suspect]
     Active Substance: METFORMIN HYDROCHLORIDE\SITAGLIPTIN PHOSPHATE
     Indication: TYPE 2 DIABETES MELLITUS
     Dosage: 50-1000 MG DAILY
     Route: 048
     Dates: start: 20130423, end: 201501

REACTIONS (47)
  - Adenocarcinoma pancreas [Unknown]
  - Plasma cell myeloma [Unknown]
  - Lung disorder [Unknown]
  - Pneumobilia [Unknown]
  - Upper gastrointestinal haemorrhage [Unknown]
  - Calculus bladder [Unknown]
  - Gastrointestinal wall thickening [Unknown]
  - Hypotension [Unknown]
  - Lethargy [Unknown]
  - Atelectasis [Unknown]
  - Abdominal wound dehiscence [Unknown]
  - Cholangiocarcinoma [Unknown]
  - Oedematous pancreatitis [Unknown]
  - Inappropriate schedule of drug administration [Unknown]
  - Pyrexia [Unknown]
  - Neutropenia [Unknown]
  - Intestinal mass [Unknown]
  - Postoperative wound infection [Recovering/Resolving]
  - Abdominal abscess [Unknown]
  - Cholecystitis chronic [Unknown]
  - Adrenal disorder [Unknown]
  - Pleural effusion [Unknown]
  - Bile duct obstruction [Unknown]
  - Gastric ulcer [Unknown]
  - Atrioventricular block second degree [Unknown]
  - Mental status changes [Recovering/Resolving]
  - Pneumonia aspiration [Unknown]
  - Pleural effusion [Unknown]
  - Osteoarthritis [Unknown]
  - Headache [Unknown]
  - Metastases to lymph nodes [Unknown]
  - Aortic arteriosclerosis [Unknown]
  - Leukaemoid reaction [Recovering/Resolving]
  - Generalised oedema [Unknown]
  - Gingival bleeding [Unknown]
  - Angina pectoris [Unknown]
  - Anaemia [Unknown]
  - Post procedural haematoma [Unknown]
  - Haematocrit decreased [Unknown]
  - Pericardial effusion [Unknown]
  - Hiatus hernia [Unknown]
  - Gastrointestinal perforation [Unknown]
  - Chronic myelomonocytic leukaemia [Not Recovered/Not Resolved]
  - Gastritis [Unknown]
  - Nodule [Unknown]
  - Hiccups [Unknown]
  - Arteriosclerosis coronary artery [Unknown]

NARRATIVE: CASE EVENT DATE: 2010
